FAERS Safety Report 4638335-X (Version None)
Quarter: 2005Q2

REPORT INFORMATION
  Report Type: 
  Country: None (occurrence: None)
  Receive Date: 20050415
  Receipt Date: 20050407
  Transmission Date: 20051028
  Serious: Yes (Hospitalization)
  Sender: FDA-Public Use
  Company Number: CIP05000791

PATIENT
  Age: 87 Year
  Sex: Female

DRUGS (1)
  1. ACTONEL [Suspect]
     Indication: OSTEOPOROSIS
     Dosage: 35 MG , ORAL
     Route: 048
     Dates: start: 20040720, end: 20050215

REACTIONS (2)
  - COORDINATION ABNORMAL [None]
  - DIZZINESS [None]
